FAERS Safety Report 9776356 (Version 1)
Quarter: 2013Q4

REPORT INFORMATION
  Report Type: Spontaneous
  Country: IT (occurrence: IT)
  Receive Date: 20131220
  Receipt Date: 20131220
  Transmission Date: 20140711
  Serious: Yes (Hospitalization)
  Sender: FDA-Public Use
  Company Number: IT-MYLANLABS-113AS20130478

PATIENT
  Age: 86 Year
  Sex: Female

DRUGS (12)
  1. METFORMIN [Suspect]
     Dosage: 1500 MG TOTAL
     Route: 048
     Dates: start: 20130417, end: 20130417
  2. BISOPROLOL HEMIFUMARATE [Suspect]
     Dosage: 3 DF TOTAL
     Route: 048
     Dates: start: 20130417, end: 20130417
  3. TAVOR [Suspect]
     Dosage: 6 DF TOTAL
     Route: 048
     Dates: start: 20130417, end: 20130417
  4. CIPRALEX [Suspect]
     Dosage: 3 DF TOTAL
     Route: 048
     Dates: start: 20130417, end: 20130417
  5. DIAMICRON [Suspect]
     Dosage: 3 DF TOTAL
     Route: 048
     Dates: start: 20130417, end: 20130417
  6. TACHIPIRINA [Suspect]
     Dosage: 3 DF TOTAL
     Route: 048
     Dates: start: 20130417, end: 20130417
  7. SERENASE /00027401/ [Suspect]
     Dosage: 2 DF TOTAL
     Route: 048
     Dates: start: 20130417, end: 20130417
  8. COUMADIN - 5 MG COMPRESSE [Concomitant]
     Indication: PRODUCT USED FOR UNKNOWN INDICATION
  9. DIBASE [Concomitant]
     Indication: PRODUCT USED FOR UNKNOWN INDICATION
  10. NEXIUM [Concomitant]
     Indication: PRODUCT USED FOR UNKNOWN INDICATION
  11. ISOPTIN - 80 MG COMPRESSE RIVESTITE CON FILM [Concomitant]
     Indication: PRODUCT USED FOR UNKNOWN INDICATION
  12. ONLIGOL [Concomitant]
     Indication: PRODUCT USED FOR UNKNOWN INDICATION

REACTIONS (5)
  - Bradycardia [Recovered/Resolved]
  - Intentional overdose [Recovered/Resolved]
  - Psychomotor hyperactivity [Recovered/Resolved]
  - Sopor [Recovered/Resolved]
  - Drug abuse [Recovered/Resolved]
